FAERS Safety Report 17237567 (Version 1)
Quarter: 2020Q1

REPORT INFORMATION
  Report Type: Spontaneous
  Country: CN (occurrence: CN)
  Receive Date: 20200106
  Receipt Date: 20200106
  Transmission Date: 20200409
  Serious: Yes (Other)
  Sender: FDA-Public Use
  Company Number: CN-PFIZER INC-2019558816

PATIENT
  Age: 5 Year
  Sex: Female

DRUGS (3)
  1. SOLU-MEDROL [Suspect]
     Active Substance: METHYLPREDNISOLONE SODIUM SUCCINATE
     Indication: INFLAMMATION
     Dosage: 30 MG, 1X/DAY
     Route: 041
     Dates: start: 20191220, end: 20191220
  2. SOLU-MEDROL [Suspect]
     Active Substance: METHYLPREDNISOLONE SODIUM SUCCINATE
     Indication: ASTHMA
  3. CEFPIRAN [Concomitant]
     Indication: PNEUMONITIS
     Dosage: 0.8 G, 1X/DAY
     Route: 041
     Dates: start: 20191220, end: 20191220

REACTIONS (3)
  - Throat irritation [Recovered/Resolved]
  - Flushing [Recovered/Resolved]
  - Rash pruritic [Recovered/Resolved]

NARRATIVE: CASE EVENT DATE: 20191220
